FAERS Safety Report 4848233-4 (Version None)
Quarter: 2005Q4

REPORT INFORMATION
  Report Type: 
  Country: None (occurrence: None)
  Receive Date: 20051206
  Receipt Date: 20051121
  Transmission Date: 20060501
  Serious: Yes (Death)
  Sender: FDA-Public Use
  Company Number: 12967

PATIENT
  Age: 37 Year
  Sex: Female

DRUGS (3)
  1. CYTARABINE [Suspect]
     Indication: ACUTE MYELOID LEUKAEMIA
     Dosage: 100 MG/M2 OTH IV
     Route: 042
  2. CYTARABINE [Suspect]
     Indication: ACUTE MYELOID LEUKAEMIA
     Dosage: 3 G/M2 OTH IV
     Route: 042
  3. IDARUBICIN HCL [Suspect]
     Indication: ACUTE MYELOID LEUKAEMIA
     Dosage: 12 MG/M2 DAILY IV
     Route: 042

REACTIONS (21)
  - APGAR SCORE LOW [None]
  - BACTERIAL SEPSIS [None]
  - BODY DYSMORPHIC DISORDER [None]
  - BODY TEMPERATURE INCREASED [None]
  - BONE MARROW FAILURE [None]
  - CAESAREAN SECTION [None]
  - CHROMOSOME ABNORMALITY [None]
  - COLON CANCER [None]
  - DILATATION VENTRICULAR [None]
  - DRUG EXPOSURE DURING PREGNANCY [None]
  - DRUG INEFFECTIVE [None]
  - FOETAL DISORDER [None]
  - HEPATIC MASS [None]
  - LEUKAEMIA RECURRENT [None]
  - MUCOSAL INFLAMMATION [None]
  - PANCYTOPENIA [None]
  - PSEUDOMONAS INFECTION [None]
  - PYREXIA [None]
  - SMALL FOR DATES BABY [None]
  - STEM CELL TRANSPLANT [None]
  - VENTRICULAR SEPTAL DEFECT [None]
